FAERS Safety Report 17262247 (Version 1)
Quarter: 2020Q1

REPORT INFORMATION
  Report Type: Spontaneous
  Country: US (occurrence: US)
  Receive Date: 20200113
  Receipt Date: 20200113
  Transmission Date: 20200409
  Serious: No
  Sender: FDA-Public Use
  Company Number: US-BAYER-2020-006013

PATIENT
  Age: 63 Year
  Sex: Female

DRUGS (2)
  1. MIRALAX [Suspect]
     Active Substance: POLYETHYLENE GLYCOL 3350
     Indication: GASTROINTESTINAL DISORDER
     Dosage: 17 G EVERY 2-3 DAYS
     Route: 048
     Dates: start: 201903
  2. COLACE [Concomitant]
     Active Substance: DOCUSATE SODIUM

REACTIONS (4)
  - Wrong technique in product usage process [Unknown]
  - Product odour abnormal [None]
  - Product solubility abnormal [None]
  - Product taste abnormal [None]

NARRATIVE: CASE EVENT DATE: 20200109
